FAERS Safety Report 4958998-9 (Version None)
Quarter: 2006Q1

REPORT INFORMATION
  Report Type: 
  Country: None (occurrence: None)
  Receive Date: 20060331
  Receipt Date: 20060313
  Transmission Date: 20060701
  Serious: Yes (Hospitalization)
  Sender: FDA-Public Use
  Company Number: 2006UW04248

PATIENT
  Age: 15413 Day
  Sex: Female
  Weight: 82 kg

DRUGS (4)
  1. IRESSA [Suspect]
     Indication: BREAST CANCER STAGE IV
     Route: 048
  2. HERCEPTIN [Suspect]
     Indication: BREAST CANCER STAGE IV
     Route: 042
     Dates: start: 20060214
  3. TAXOTERE [Suspect]
     Indication: BREAST CANCER STAGE IV
     Route: 042
     Dates: start: 20060214
  4. TYLENOL (CAPLET) [Concomitant]

REACTIONS (3)
  - COUGH [None]
  - HEADACHE [None]
  - SINUSITIS [None]
